FAERS Safety Report 24346549 (Version 3)
Quarter: 2024Q4

REPORT INFORMATION
  Report Type: Report from Study
  Country: US (occurrence: US)
  Receive Date: 20240921
  Receipt Date: 20241015
  Transmission Date: 20250115
  Serious: Yes (Hospitalization, Other)
  Sender: ABBVIE
  Company Number: US-ABBVIE-5898486

PATIENT
  Sex: Male

DRUGS (3)
  1. CREON [Suspect]
     Active Substance: PANCRELIPASE AMYLASE\PANCRELIPASE LIPASE\PANCRELIPASE PROTEASE
     Indication: Product used for unknown indication
     Dosage: DOSE TEXT: UNKNOWN?FREQUENCY TEXT: UNKNOWN?STOP DATE TEXT: 2024
     Route: 048
     Dates: start: 20240803
  2. CREON [Suspect]
     Active Substance: PANCRELIPASE AMYLASE\PANCRELIPASE LIPASE\PANCRELIPASE PROTEASE
     Indication: Product used for unknown indication
     Dosage: DOSE TEXT: UNKNOWN?FREQUENCY TEXT: UNKNOWN?START DATE TEXT: 2024
     Route: 048
  3. MAGNESIUM [Suspect]
     Active Substance: MAGNESIUM
     Indication: Blood pressure measurement
     Route: 042
     Dates: start: 2024

REACTIONS (6)
  - Blood pressure decreased [Recovered/Resolved]
  - Hypotension [Recovered/Resolved]
  - Diarrhoea [Not Recovered/Not Resolved]
  - Loss of consciousness [Recovered/Resolved]
  - Unresponsive to stimuli [Recovered/Resolved]
  - Diarrhoea [Recovered/Resolved]

NARRATIVE: CASE EVENT DATE: 20240101
